FAERS Safety Report 7403723-5 (Version None)
Quarter: 2011Q2

REPORT INFORMATION
  Report Type: 
  Country: None (occurrence: None)
  Receive Date: 20110408
  Receipt Date: 20110406
  Transmission Date: 20111010
  Serious: Yes (Other)
  Sender: FDA-Public Use
  Company Number: US-BRISTOL-MYERS SQUIBB COMPANY-15657497

PATIENT
  Sex: Female

DRUGS (1)
  1. ABILIFY [Suspect]

REACTIONS (4)
  - SUICIDE ATTEMPT [None]
  - ARM AMPUTATION [None]
  - FEELING ABNORMAL [None]
  - DIABETES MELLITUS [None]
